FAERS Safety Report 7359766-3 (Version None)
Quarter: 2011Q1

REPORT INFORMATION
  Report Type: 
  Country: None (occurrence: None)
  Receive Date: 20110317
  Receipt Date: 20110310
  Transmission Date: 20110831
  Serious: Yes (Death, Other)
  Sender: FDA-Public Use
  Company Number: IT-CELGENEUS-083-21880-11031352

PATIENT
  Sex: Female

DRUGS (7)
  1. MERREM [Concomitant]
     Dosage: 3 GRAM
     Route: 048
  2. LANSOPRAZOLE [Concomitant]
     Dosage: 30 MILLIGRAM
     Route: 048
  3. REVLIMID [Suspect]
     Indication: ACUTE MYELOID LEUKAEMIA
     Dosage: 10 MILLIGRAM
     Route: 048
     Dates: start: 20100804, end: 20100824
  4. CYTARABINE [Suspect]
     Indication: ACUTE MYELOID LEUKAEMIA
     Dosage: 40 MILLIGRAM
     Route: 058
     Dates: start: 20100804, end: 20100818
  5. ZYLORIC [Concomitant]
     Route: 048
  6. TINSET [Concomitant]
     Dosage: 3 TABLET
     Route: 048
  7. TAREG [Concomitant]
     Dosage: 40 MILLIGRAM
     Route: 048

REACTIONS (2)
  - HEPATIC FAILURE [None]
  - FEBRILE NEUTROPENIA [None]
